FAERS Safety Report 19840686 (Version 4)
Quarter: 2022Q1

REPORT INFORMATION
  Report Type: Report from Study
  Country: DE (occurrence: DE)
  Receive Date: 20210915
  Receipt Date: 20220124
  Transmission Date: 20220423
  Serious: Yes (Hospitalization, Other)
  Sender: FDA-Public Use
  Company Number: DE-TAKEDA-2021TUS056836

PATIENT
  Age: 2 Year
  Sex: Male

DRUGS (46)
  1. TEDUGLUTIDE [Suspect]
     Active Substance: TEDUGLUTIDE
     Indication: Short-bowel syndrome
     Dosage: 0.050 MILLIGRAM, QD
     Route: 058
     Dates: start: 20201015, end: 20210615
  2. TEDUGLUTIDE [Suspect]
     Active Substance: TEDUGLUTIDE
     Indication: Short-bowel syndrome
     Dosage: 0.050 MILLIGRAM, QD
     Route: 058
     Dates: start: 20201015, end: 20210615
  3. TEDUGLUTIDE [Suspect]
     Active Substance: TEDUGLUTIDE
     Indication: Short-bowel syndrome
     Dosage: 0.050 MILLIGRAM, QD
     Route: 058
     Dates: start: 20201015, end: 20210615
  4. TEDUGLUTIDE [Suspect]
     Active Substance: TEDUGLUTIDE
     Indication: Short-bowel syndrome
     Dosage: 0.050 MILLIGRAM, QD
     Route: 058
     Dates: start: 20201015, end: 20210615
  5. TEDUGLUTIDE [Suspect]
     Active Substance: TEDUGLUTIDE
     Dosage: 0.550 MILLIGRAM, QD
     Route: 058
     Dates: start: 20210606
  6. TEDUGLUTIDE [Suspect]
     Active Substance: TEDUGLUTIDE
     Dosage: 0.550 MILLIGRAM, QD
     Route: 058
     Dates: start: 20210606
  7. TEDUGLUTIDE [Suspect]
     Active Substance: TEDUGLUTIDE
     Dosage: 0.550 MILLIGRAM, QD
     Route: 058
     Dates: start: 20210606
  8. TEDUGLUTIDE [Suspect]
     Active Substance: TEDUGLUTIDE
     Dosage: 0.550 MILLIGRAM, QD
     Route: 058
     Dates: start: 20210606
  9. TEDUGLUTIDE [Suspect]
     Active Substance: TEDUGLUTIDE
     Dosage: 0.550 MILLIGRAM, QD
     Route: 058
     Dates: start: 20210706
  10. TEDUGLUTIDE [Suspect]
     Active Substance: TEDUGLUTIDE
     Dosage: 0.550 MILLIGRAM, QD
     Route: 058
     Dates: start: 20210706
  11. TEDUGLUTIDE [Suspect]
     Active Substance: TEDUGLUTIDE
     Dosage: 0.550 MILLIGRAM, QD
     Route: 058
     Dates: start: 20210706
  12. TEDUGLUTIDE [Suspect]
     Active Substance: TEDUGLUTIDE
     Dosage: 0.550 MILLIGRAM, QD
     Route: 058
     Dates: start: 20210706
  13. BACLOFEN [Concomitant]
     Active Substance: BACLOFEN
     Indication: Leukoencephalopathy
     Dosage: 1.00 MILLIGRAM, TID
     Route: 065
  14. FLUCONAZOLE [Concomitant]
     Active Substance: FLUCONAZOLE
     Indication: Sepsis
     Dosage: 60.00 MILLIGRAM, QD
     Route: 065
     Dates: start: 20210616, end: 20210623
  15. PIPERACILLIN SODIUM\TAZOBACTAM SODIUM [Concomitant]
     Active Substance: PIPERACILLIN SODIUM\TAZOBACTAM SODIUM
     Indication: Sepsis
     Dosage: 730 MILLIGRAM, TID
     Route: 042
     Dates: start: 20210610, end: 20210624
  16. CEFTAZIDIME [Concomitant]
     Active Substance: CEFTAZIDIME
     Indication: Sepsis
     Dosage: 20 MILLIGRAM, Q72H
     Route: 042
     Dates: start: 20210521, end: 20210604
  17. KONAKION [Concomitant]
     Active Substance: PHYTONADIONE
     Indication: Prophylaxis
     Dosage: 2 MILLIGRAM, QD
     Route: 042
     Dates: start: 20190807, end: 20191022
  18. KONAKION [Concomitant]
     Active Substance: PHYTONADIONE
     Dosage: 3 MILLIGRAM, QD
     Route: 042
     Dates: start: 20191023
  19. ORGARAN [Concomitant]
     Active Substance: DANAPAROID SODIUM
     Indication: Spontaneous heparin-induced thrombocytopenia syndrome
     Dosage: 100 INTERNATIONAL UNIT, BID
     Route: 058
     Dates: start: 20190705, end: 20191022
  20. ORGARAN [Concomitant]
     Active Substance: DANAPAROID SODIUM
     Dosage: 130 INTERNATIONAL UNIT, BID
     Route: 058
     Dates: start: 20191023, end: 20200618
  21. ORGARAN [Concomitant]
     Active Substance: DANAPAROID SODIUM
     Dosage: 140 INTERNATIONAL UNIT, BID
     Route: 058
     Dates: start: 20200619, end: 20200704
  22. ORGARAN [Concomitant]
     Active Substance: DANAPAROID SODIUM
     Dosage: 160 INTERNATIONAL UNIT, BID
     Route: 042
     Dates: start: 20200705, end: 20200831
  23. ORGARAN [Concomitant]
     Active Substance: DANAPAROID SODIUM
     Dosage: 180 INTERNATIONAL UNIT, BID
     Route: 042
     Dates: start: 20200901, end: 20201019
  24. ORGARAN [Concomitant]
     Active Substance: DANAPAROID SODIUM
     Dosage: 200 INTERNATIONAL UNIT, BID
     Route: 042
     Dates: start: 20201020
  25. OMEPRAZOLE [Concomitant]
     Active Substance: OMEPRAZOLE
     Indication: Gastric pH decreased
     Dosage: 5 MILLIGRAM, QD
     Route: 048
     Dates: start: 20190807, end: 20200618
  26. OMEPRAZOLE [Concomitant]
     Active Substance: OMEPRAZOLE
     Dosage: 8 MILLIGRAM, QD
     Route: 048
     Dates: start: 20200619, end: 20200831
  27. OMEPRAZOLE [Concomitant]
     Active Substance: OMEPRAZOLE
     Dosage: 10 MILLIGRAM, QD
     Route: 048
     Dates: start: 20200901
  28. URSODIOL [Concomitant]
     Active Substance: URSODIOL
     Indication: Bile acid malabsorption
     Dosage: 50 MILLIGRAM, BID
     Route: 048
     Dates: start: 20190807, end: 20191022
  29. URSODIOL [Concomitant]
     Active Substance: URSODIOL
     Dosage: 60 MILLIGRAM, BID
     Route: 048
     Dates: start: 20191023, end: 20200618
  30. URSODIOL [Concomitant]
     Active Substance: URSODIOL
     Dosage: 90 MILLIGRAM, BID
     Route: 048
     Dates: start: 20200619, end: 20200831
  31. URSODIOL [Concomitant]
     Active Substance: URSODIOL
     Dosage: 100 MILLIGRAM, BID
     Route: 048
     Dates: start: 20200901
  32. VITAMIN D [Concomitant]
     Active Substance: VITAMIN D NOS
     Indication: Vitamin D deficiency
     Dosage: 1000 INTERNATIONAL UNIT, QD
     Route: 048
     Dates: start: 20190807, end: 20201019
  33. VITAMIN D [Concomitant]
     Active Substance: VITAMIN D NOS
     Dosage: 2000 INTERNATIONAL UNIT, QD
     Route: 048
     Dates: start: 20201020
  34. VANCOMYCIN [Concomitant]
     Active Substance: VANCOMYCIN
     Indication: Sepsis
     Dosage: 120 MILLIGRAM, QID
     Route: 042
     Dates: start: 20201002, end: 20201002
  35. VANCOMYCIN [Concomitant]
     Active Substance: VANCOMYCIN
     Indication: Device related infection
     Dosage: 120 MILLIGRAM, TID
     Route: 042
     Dates: start: 20201003, end: 20201012
  36. VANCOMYCIN [Concomitant]
     Active Substance: VANCOMYCIN
     Dosage: 120 MILLIGRAM, QD
     Route: 042
     Dates: start: 20201013, end: 20201013
  37. VANCOMYCIN [Concomitant]
     Active Substance: VANCOMYCIN
     Dosage: 150 MILLIGRAM, BID
     Route: 042
     Dates: start: 20210515, end: 20210704
  38. VANCOMYCIN [Concomitant]
     Active Substance: VANCOMYCIN
     Dosage: 300 MILLIGRAM, TID
     Route: 042
     Dates: start: 202109, end: 20210930
  39. MEROPENEM [Concomitant]
     Active Substance: MEROPENEM
     Indication: Sepsis
     Dosage: 200 MILLIGRAM, TID
     Route: 042
     Dates: start: 20201002, end: 20201012
  40. MEROPENEM [Concomitant]
     Active Substance: MEROPENEM
     Indication: Device related infection
     Dosage: 200 MILLIGRAM, QID
     Route: 042
     Dates: start: 20201013, end: 20201013
  41. MEROPENEM [Concomitant]
     Active Substance: MEROPENEM
     Dosage: 200 MILLIGRAM, QD
     Route: 042
     Dates: start: 20201014, end: 20201014
  42. MEROPENEM [Concomitant]
     Active Substance: MEROPENEM
     Dosage: 220 MILLIGRAM, TID
     Route: 042
     Dates: start: 20210515, end: 20210610
  43. MEROPENEM [Concomitant]
     Active Substance: MEROPENEM
     Dosage: 220 MILLIGRAM, TID
     Route: 042
     Dates: start: 20210624, end: 20210705
  44. MEROPENEM [Concomitant]
     Active Substance: MEROPENEM
     Dosage: 280 MILLIGRAM
     Route: 042
     Dates: start: 202109, end: 20210930
  45. METRONIDAZOLE [Concomitant]
     Active Substance: METRONIDAZOLE
     Dosage: 100 MILLIGRAM, TID
     Route: 042
     Dates: start: 20210515, end: 20210518
  46. LINEZOLID [Concomitant]
     Active Substance: LINEZOLID
     Indication: Sepsis
     Dosage: 100 MILLIGRAM, TID
     Route: 042
     Dates: start: 20210516, end: 20210520

REACTIONS (2)
  - Device related infection [Recovered/Resolved]
  - Device physical property issue [Recovered/Resolved]

NARRATIVE: CASE EVENT DATE: 20210908
